FAERS Safety Report 22390165 (Version 1)
Quarter: 2023Q2

REPORT INFORMATION
  Report Type: Spontaneous
  Country: CN (occurrence: CN)
  Receive Date: 20230531
  Receipt Date: 20230531
  Transmission Date: 20230721
  Serious: Yes (Other)
  Sender: FDA-Public Use
  Company Number: CN-PFIZER INC-PV202300094339

PATIENT
  Age: 47 Year
  Sex: Male
  Weight: 99 kg

DRUGS (20)
  1. VORICONAZOLE [Suspect]
     Active Substance: VORICONAZOLE
     Indication: Prophylaxis
     Dosage: 200 MG, Q12H
     Route: 048
     Dates: start: 20200623, end: 20200628
  2. VORICONAZOLE [Concomitant]
     Active Substance: VORICONAZOLE
     Indication: Prophylaxis
     Dosage: 200 MG, QL2H
     Route: 041
     Dates: start: 20200619, end: 20200622
  3. TACROLIMUS [Concomitant]
     Active Substance: TACROLIMUS
     Dosage: 3 MG, Q12H
     Route: 048
     Dates: start: 20200607, end: 20200609
  4. TACROLIMUS [Concomitant]
     Active Substance: TACROLIMUS
     Dosage: 2 MG, Q12H
     Route: 048
     Dates: start: 20200609, end: 20200612
  5. TACROLIMUS [Concomitant]
     Active Substance: TACROLIMUS
     Dosage: 1.5 MG, Q12H
     Route: 048
     Dates: start: 20200612, end: 20200615
  6. TACROLIMUS [Concomitant]
     Active Substance: TACROLIMUS
     Dosage: 1 MG, Q12H
     Route: 048
     Dates: start: 20200615, end: 20200623
  7. TACROLIMUS [Concomitant]
     Active Substance: TACROLIMUS
     Dosage: 0.5 MG, Q12H
     Route: 048
     Dates: start: 20200623, end: 20200625
  8. TACROLIMUS [Concomitant]
     Active Substance: TACROLIMUS
     Dosage: 0.25 MG, Q12H
     Route: 048
     Dates: start: 20200628, end: 20200630
  9. TACROLIMUS [Concomitant]
     Active Substance: TACROLIMUS
     Dosage: 0.5 MG, Q12H
     Route: 048
     Dates: start: 20200630, end: 20200703
  10. TACROLIMUS [Concomitant]
     Active Substance: TACROLIMUS
     Dosage: 0.75 MG, Q12H
     Route: 048
     Dates: start: 20200703, end: 20200706
  11. TACROLIMUS [Concomitant]
     Active Substance: TACROLIMUS
     Dosage: 1 MG, Q12H
     Route: 048
     Dates: start: 20200706, end: 20200708
  12. METHYLPREDNISOLONE SODIUM SUCCINATE [Concomitant]
     Active Substance: METHYLPREDNISOLONE SODIUM SUCCINATE
     Indication: Therapeutic procedure
     Dosage: 80 MG, Q12H
     Route: 042
     Dates: start: 20200607, end: 20200610
  13. METHYLPREDNISOLONE [Concomitant]
     Active Substance: METHYLPREDNISOLONE
     Indication: Therapeutic procedure
     Dosage: 20 MG, 1X/DAY
     Route: 048
     Dates: start: 20200611, end: 20200623
  14. METHYLPREDNISOLONE [Concomitant]
     Active Substance: METHYLPREDNISOLONE
     Dosage: 12  MG, 1X/DAY
     Route: 048
     Dates: start: 20200624, end: 20200708
  15. ESOMEPRAZOLE SODIUM [Concomitant]
     Active Substance: ESOMEPRAZOLE SODIUM
     Indication: Therapeutic procedure
     Dosage: 40  MG, 1X/DAY
     Route: 041
     Dates: start: 20200606, end: 20200613
  16. LANSOPRAZOLE [Concomitant]
     Active Substance: LANSOPRAZOLE
     Indication: Therapeutic procedure
     Dosage: 30 MG, 1X/DAY
     Route: 041
     Dates: start: 20200613, end: 20200628
  17. NIFEDIPINE [Concomitant]
     Active Substance: NIFEDIPINE
     Indication: Hypertension
     Dosage: 30  MG, Q12H
     Route: 048
     Dates: start: 20200610, end: 20200614
  18. MOSAPRIDE CITRATE [Concomitant]
     Active Substance: MOSAPRIDE CITRATE
     Indication: Therapeutic procedure
     Dosage: 5 MG, 3X/DAY
     Route: 048
     Dates: start: 20200610, end: 20200611
  19. DOMPERIDONE [Concomitant]
     Active Substance: DOMPERIDONE
     Indication: Therapeutic procedure
     Dosage: 10 MG, 3X/DAY
     Route: 048
     Dates: start: 20200619, end: 20200702
  20. BASILIXIMAB [Concomitant]
     Active Substance: BASILIXIMAB
     Dosage: UNK

REACTIONS (1)
  - Drug level increased [Unknown]
